FAERS Safety Report 20712208 (Version 1)
Quarter: 2022Q2

REPORT INFORMATION
  Report Type: Spontaneous
  Country: CA (occurrence: CA)
  Receive Date: 20220414
  Receipt Date: 20220414
  Transmission Date: 20220721
  Serious: Yes (Other)
  Sender: FDA-Public Use
  Company Number: CA-BAXTER-2022BAX007904

PATIENT
  Age: 15 Year
  Sex: Male

DRUGS (5)
  1. CYCLOPHOSPHAMIDE [Suspect]
     Active Substance: CYCLOPHOSPHAMIDE
     Indication: Temporal lobe epilepsy
     Dosage: DOSAGE FORM: NOT SPECIFIED
     Route: 065
  2. METHYLPREDNISOLONE [Suspect]
     Active Substance: METHYLPREDNISOLONE
     Indication: Temporal lobe epilepsy
     Route: 042
  3. MYCOPHENOLATE MOFETIL [Suspect]
     Active Substance: MYCOPHENOLATE MOFETIL
     Indication: Temporal lobe epilepsy
     Dosage: DOSAGE FORM: NOT SPECIFIED
     Route: 065
  4. RITUXIMAB [Suspect]
     Active Substance: RITUXIMAB
     Indication: Temporal lobe epilepsy
     Route: 065
  5. HUMAN IMMUNOGLOBULIN G [Suspect]
     Active Substance: HUMAN IMMUNOGLOBULIN G
     Indication: Temporal lobe epilepsy
     Route: 042

REACTIONS (5)
  - Drug ineffective [Unknown]
  - Product use in unapproved indication [Unknown]
  - Temporal lobe epilepsy [Unknown]
  - Treatment failure [Unknown]
  - Neuropathy peripheral [Unknown]
